FAERS Safety Report 9058887 (Version 3)
Quarter: 2013Q2

REPORT INFORMATION
  Report Type: Report from Study
  Country: BE (occurrence: BE)
  Receive Date: 20130211
  Receipt Date: 20130405
  Transmission Date: 20140414
  Serious: Yes (Hospitalization, Other)
  Sender: FDA-Public Use
  Company Number: BE-ASTELLAS-2013EU000701

PATIENT
  Age: 67 Year
  Sex: Male
  Weight: 90 kg

DRUGS (11)
  1. BLINDED SOLIFENACIN-MIRABEGRON [Suspect]
     Indication: HYPERTONIC BLADDER
     Dosage: UNK
     Route: 048
     Dates: start: 20121128
  2. EXFORGE [Concomitant]
     Indication: HYPERTENSION
     Dosage: UNK
     Route: 048
     Dates: start: 20130116, end: 20130118
  3. HYGROTON [Concomitant]
     Indication: HYPERTENSION
     Dosage: 50 MG, UID/QD
     Route: 048
     Dates: start: 20130116, end: 20130118
  4. GLIBENCLAMIDE [Concomitant]
     Indication: TYPE 2 DIABETES MELLITUS
     Dosage: 2.5 MG, UNKNOWN/D
     Route: 048
     Dates: start: 2000
  5. METFORMIN [Concomitant]
     Indication: TYPE 2 DIABETES MELLITUS
     Dosage: 2550 MG, UNKNOWN/D
     Route: 048
     Dates: start: 2007
  6. ALLOPURINOL [Concomitant]
     Indication: GOUT
     Dosage: 300 MG, UNKNOWN/D
     Route: 048
     Dates: start: 2008
  7. ACETYLSALICYLIC ACID [Concomitant]
     Indication: CARDIOVASCULAR EVENT PROPHYLAXIS
     Dosage: 100 MG, UNKNOWN/D
     Route: 048
     Dates: start: 2002
  8. RASILEZ HCT [Concomitant]
     Indication: HYPERTENSION
     Dosage: 1 DF, UNKNOWN/D
     Route: 048
     Dates: start: 2008
  9. ATORVASTATINE [Concomitant]
     Indication: HYPERCHOLESTEROLAEMIA
     Dosage: 20 MG, UNKNOWN/D
     Route: 048
     Dates: start: 2008
  10. OMEPRAZOL                          /00661201/ [Concomitant]
     Indication: GASTROOESOPHAGEAL REFLUX DISEASE
     Dosage: 40 MG, UNKNOWN/D
     Route: 048
     Dates: start: 2006
  11. CINNARIZINE [Concomitant]
     Indication: TINNITUS
     Dosage: 40 MG, UNKNOWN/D
     Route: 048
     Dates: start: 20080401

REACTIONS (3)
  - Renal failure acute [Recovered/Resolved]
  - Hypotension [Recovered/Resolved]
  - Urinary retention [Recovered/Resolved]
